FAERS Safety Report 13828027 (Version 1)
Quarter: 2017Q3

REPORT INFORMATION
  Report Type: Report from Study
  Country: US (occurrence: US)
  Receive Date: 20170803
  Receipt Date: 20170803
  Transmission Date: 20171127
  Serious: Yes (Other)
  Sender: FDA-Public Use
  Company Number: US-ROCHE-1971036

PATIENT
  Sex: Male

DRUGS (1)
  1. CELLCEPT [Suspect]
     Active Substance: MYCOPHENOLATE MOFETIL\MYCOPHENOLATE MOFETIL HYDROCHLORIDE
     Indication: PRODUCT USED FOR UNKNOWN INDICATION
     Dosage: 500MG: TAKE 750MG PO BID
     Route: 048

REACTIONS (13)
  - Dyspnoea exertional [Unknown]
  - Appetite disorder [Unknown]
  - Incontinence [Unknown]
  - Weight decreased [Unknown]
  - Dyspepsia [Unknown]
  - Respiratory papilloma [Unknown]
  - Fatigue [Unknown]
  - Anxiety [Unknown]
  - Deafness [Unknown]
  - Crepitations [Unknown]
  - Nervousness [Unknown]
  - Cough [Unknown]
  - Pulmonary congestion [Unknown]
